FAERS Safety Report 4649085-8 (Version None)
Quarter: 2005Q2

REPORT INFORMATION
  Report Type: 
  Country: None (occurrence: None)
  Receive Date: 20050429
  Receipt Date: 20050413
  Transmission Date: 20051028
  Serious: Yes (Death, Hospitalization)
  Sender: FDA-Public Use
  Company Number: DEPFP-S-20050012

PATIENT
  Age: 50 Year
  Sex: Female

DRUGS (2)
  1. NAVELBINE [Suspect]
     Route: 042
     Dates: start: 20050201, end: 20050205
  2. TAXOTERE [Suspect]
     Dosage: 75MGM2 PER DAY
     Dates: start: 20050201, end: 20050201

REACTIONS (9)
  - ABDOMINAL PAIN [None]
  - ACUTE ABDOMEN [None]
  - CARDIAC FAILURE [None]
  - CHOLELITHIASIS [None]
  - CIRCULATORY COLLAPSE [None]
  - COLITIS [None]
  - DIARRHOEA [None]
  - GASTROINTESTINAL PAIN [None]
  - LARGE INTESTINE PERFORATION [None]
